FAERS Safety Report 9522747 (Version 2)
Quarter: 2014Q1

REPORT INFORMATION
  Report Type: Spontaneous
  Country: US (occurrence: None)
  Receive Date: 20130305
  Receipt Date: 20140306
  Transmission Date: 20141002
  Serious: Yes (Hospitalization)
  Sender: FDA-Public Use
  Company Number: 163-21880-12080367

PATIENT
  Age: 82 Year
  Sex: Male

DRUGS (2)
  1. REVLIMID (LENALIDOMIDE) (CAPSULES) [Suspect]
     Indication: PLASMA CELL MYELOMA
     Dosage: 21 IN 28 D
     Route: 048
     Dates: start: 201207, end: 201207
  2. LEVAQUIN (LEVOFLOXACIN) (UNKNOWN) [Concomitant]

REACTIONS (2)
  - Myocardial infarction [None]
  - Flatulence [None]
